FAERS Safety Report 8327965-X (Version None)
Quarter: 2012Q2

REPORT INFORMATION
  Report Type: 
  Country: None (occurrence: None)
  Receive Date: 20120502
  Receipt Date: 20120426
  Transmission Date: 20120825
  Serious: Yes (Other)
  Sender: FDA-Public Use
  Company Number: US-AMGEN-USASP2011037498

PATIENT
  Age: 34 Year
  Sex: Male
  Weight: 73 kg

DRUGS (2)
  1. ENBREL [Suspect]
     Dosage: 50 MG, 2 TIMES/WK
     Dates: start: 20110124
  2. ENBREL [Suspect]
     Indication: PSORIASIS
     Dosage: 50 MG, 2 TIMES/WK
     Route: 058
     Dates: start: 20110301

REACTIONS (6)
  - SURGERY [None]
  - RASH PAPULAR [None]
  - RASH PRURITIC [None]
  - FINGER AMPUTATION [None]
  - ACCIDENT AT WORK [None]
  - INJECTION SITE PAIN [None]
